FAERS Safety Report 20363365 (Version 1)
Quarter: 2022Q1

REPORT INFORMATION
  Report Type: Spontaneous
  Country: US (occurrence: None)
  Receive Date: 20220121
  Receipt Date: 20220121
  Transmission Date: 20220423
  Serious: No
  Sender: FDA-Public Use
  Company Number: None

PATIENT
  Age: 70 Year
  Sex: Male
  Weight: 85.05 kg

DRUGS (1)
  1. REGEN-COV [Suspect]
     Active Substance: CASIRIVIMAB\IMDEVIMAB
     Indication: COVID-19
     Dosage: 60UG, ONCE;?
     Route: 058

REACTIONS (5)
  - Asthenia [None]
  - Dizziness [None]
  - Pallor [None]
  - Hyperhidrosis [None]
  - Depressed level of consciousness [None]

NARRATIVE: CASE EVENT DATE: 20220120
